FAERS Safety Report 15770477 (Version 1)
Quarter: 2018Q4

REPORT INFORMATION
  Report Type: Report from Study
  Country: ZA (occurrence: ZA)
  Receive Date: 20181228
  Receipt Date: 20181228
  Transmission Date: 20190205
  Serious: Yes (Other)
  Sender: FDA-Public Use
  Company Number: ZA-BRISTOL-MYERS SQUIBB COMPANY-BMS-2017-046228

PATIENT
  Age: 79 Year
  Sex: Female

DRUGS (2)
  1. AMITRIPTYLINE [Concomitant]
     Active Substance: AMITRIPTYLINE
     Indication: HEADACHE
     Dosage: UNK
     Route: 048
  2. ABATACEPT [Suspect]
     Active Substance: ABATACEPT
     Indication: RHEUMATOID ARTHRITIS
     Dosage: 125 MG, QWK
     Route: 058
     Dates: start: 20170412

REACTIONS (4)
  - Cough [Unknown]
  - Drug ineffective [Recovering/Resolving]
  - Arthropathy [Unknown]
  - Headache [Unknown]

NARRATIVE: CASE EVENT DATE: 20170412
